FAERS Safety Report 5076110-5 (Version None)
Quarter: 2006Q3

REPORT INFORMATION
  Report Type: 
  Country: None (occurrence: None)
  Receive Date: 20060807
  Receipt Date: 20060725
  Transmission Date: 20061208
  Serious: Yes (Other)
  Sender: FDA-Public Use
  Company Number: 2006091489

PATIENT
  Age: 60 Year
  Sex: Female
  Weight: 72.5755 kg

DRUGS (2)
  1. XALATAN [Suspect]
     Indication: GLAUCOMA
     Dosage: 2.5 ML (2.5 ML, FREQUENCY: QD INTERVAL EVERYDAY)
     Dates: start: 20000101
  2. LEVOTHYROXINE SODIUM [Concomitant]

REACTIONS (4)
  - LUNG DISORDER [None]
  - LUNG NEOPLASM [None]
  - PULMONARY CONGESTION [None]
  - WHEEZING [None]
